FAERS Safety Report 9782539 (Version 1)
Quarter: 2013Q4

REPORT INFORMATION
  Report Type: Spontaneous
  Country: IT (occurrence: None)
  Receive Date: 20131220
  Receipt Date: 20131220
  Transmission Date: 20140711
  Serious: Yes (Hospitalization)
  Sender: FDA-Public Use
  Company Number: AUR-APL-2013-10521

PATIENT
  Age: 50 Year
  Sex: Female

DRUGS (1)
  1. OLANZAPINE (OLANZAPINE) [Suspect]
     Indication: PRODUCT USED FOR UNKNOWN INDICATION

REACTIONS (5)
  - Confusional state [None]
  - Malaise [None]
  - Mood altered [None]
  - Restlessness [None]
  - Somnolence [None]
